FAERS Safety Report 4753487-9 (Version None)
Quarter: 2005Q3

REPORT INFORMATION
  Report Type: 
  Country: None (occurrence: None)
  Receive Date: 20050824
  Receipt Date: 20050812
  Transmission Date: 20060218
  Serious: Yes (Hospitalization)
  Sender: FDA-Public Use
  Company Number: 2005US001111

PATIENT
  Age: 26 Year
  Sex: Male

DRUGS (2)
  1. AMBISOME [Suspect]
     Indication: FUNGAL INFECTION
  2. ABELCET [Concomitant]

REACTIONS (2)
  - ANGIONEUROTIC OEDEMA [None]
  - SHOCK [None]
